FAERS Safety Report 8339237-8 (Version None)
Quarter: 2012Q2

REPORT INFORMATION
  Report Type: 
  Country: None (occurrence: None)
  Receive Date: 20120507
  Receipt Date: 20120430
  Transmission Date: 20120825
  Serious: Yes (Hospitalization)
  Sender: FDA-Public Use
  Company Number: DE-JNJFOC-20120503132

PATIENT
  Sex: Female
  Weight: 68 kg

DRUGS (11)
  1. AMLODIPINE [Concomitant]
  2. XARELTO [Suspect]
     Indication: ATRIAL FIBRILLATION
     Route: 048
     Dates: start: 20120120, end: 20120313
  3. AMIODARONE HCL [Concomitant]
  4. METOPROLOL TARTRATE [Concomitant]
  5. PANTOPRAZOLE [Concomitant]
     Route: 048
  6. RAMIPRIL [Concomitant]
  7. FUROSEMIDE [Concomitant]
  8. FUROSEMIDE [Concomitant]
     Dosage: ORAL
  9. TORSEMIDE [Concomitant]
  10. RAMIPRIL [Concomitant]
  11. ENOXAPARIN SODIUM [Concomitant]

REACTIONS (2)
  - CARDIAC FAILURE [None]
  - OEDEMA PERIPHERAL [None]
